FAERS Safety Report 19263801 (Version 2)
Quarter: 2021Q2

REPORT INFORMATION
  Report Type: Report from Study
  Country: CO (occurrence: CO)
  Receive Date: 20210517
  Receipt Date: 20210528
  Transmission Date: 20210717
  Serious: Yes (Hospitalization, Other)
  Sender: FDA-Public Use
  Company Number: CO-AMGEN-COLSL2019135095

PATIENT
  Age: 55 Year
  Sex: Male

DRUGS (3)
  1. ARTIFICIAL TEARS [HYPROMELLOSE] [Concomitant]
     Dosage: UNK (APPLY ONE DROP TO EACH EYE THREE TIMES A DAY)
     Dates: start: 20191221
  2. VECTIBIX [Suspect]
     Active Substance: PANITUMUMAB
     Indication: COLORECTAL CANCER METASTATIC
     Dosage: 342 MILLIGRAM, (OTHER)
     Route: 042
     Dates: start: 20190719, end: 20190914
  3. VECTIBIX [Suspect]
     Active Substance: PANITUMUMAB
     Dosage: 342 MILLIGRAM, Q2WK
     Route: 042
     Dates: start: 20191011

REACTIONS (13)
  - Insomnia [Recovering/Resolving]
  - Pain in extremity [Recovering/Resolving]
  - Headache [Recovering/Resolving]
  - Oropharyngeal pain [Recovering/Resolving]
  - Skin reaction [Not Recovered/Not Resolved]
  - Rash [Not Recovered/Not Resolved]
  - Asthenia [Recovering/Resolving]
  - Feeding disorder [Recovering/Resolving]
  - Oral papule [Recovering/Resolving]
  - Throat irritation [Recovering/Resolving]
  - Stomatitis [Recovering/Resolving]
  - Vomiting [Recovering/Resolving]
  - Discouragement [Recovering/Resolving]

NARRATIVE: CASE EVENT DATE: 2019
